FAERS Safety Report 5951111-0 (Version None)
Quarter: 2008Q4

REPORT INFORMATION
  Report Type: 
  Country: None (occurrence: None)
  Receive Date: 20081112
  Receipt Date: 20081112
  Transmission Date: 20090506
  Serious: No
  Sender: FDA-Public Use
  Company Number: None

PATIENT
  Age: 34 Year
  Sex: Female
  Weight: 61.2356 kg

DRUGS (1)
  1. PROAIR HFA [Suspect]
     Indication: ASTHMA
     Dosage: 2 PUFFS AS NEEDED
     Dates: start: 20081101, end: 20081111

REACTIONS (6)
  - ANXIETY [None]
  - DRUG EFFECT DECREASED [None]
  - DRY THROAT [None]
  - GLOSSITIS [None]
  - THROAT IRRITATION [None]
  - TONGUE DRY [None]
